FAERS Safety Report 5951886-0 (Version None)
Quarter: 2008Q4

REPORT INFORMATION
  Report Type: 
  Country: None (occurrence: None)
  Receive Date: 20081113
  Receipt Date: 20081105
  Transmission Date: 20090506
  Serious: Yes (Other)
  Sender: FDA-Public Use
  Company Number: DE-BAXTER-2008BH010167

PATIENT
  Age: 46 Year
  Sex: Female
  Weight: 60 kg

DRUGS (3)
  1. CYCLOPHOSPHAMIDE [Suspect]
     Indication: BREAST CANCER
     Dosage: DOSE UNIT:UNKNOWN
     Route: 065
  2. ADRIAMYCIN PFS [Suspect]
     Indication: BREAST CANCER
     Dosage: DOSE UNIT:UNKNOWN
     Route: 065
  3. DOCETAXEL [Suspect]
     Indication: BREAST CANCER
     Dosage: DOSE UNIT:UNKNOWN
     Route: 065

REACTIONS (1)
  - ARTHRALGIA [None]
